FAERS Safety Report 7445212-8 (Version None)
Quarter: 2011Q2

REPORT INFORMATION
  Report Type: 
  Country: None (occurrence: None)
  Receive Date: 20110420
  Receipt Date: 20110405
  Transmission Date: 20111010
  Serious: Yes (Death)
  Sender: FDA-Public Use
  Company Number: 1000020073

PATIENT
  Sex: Male

DRUGS (5)
  1. RAMIPRIL (RAMIPRIL)(TABLETS)(RAMIPRIL) [Concomitant]
  2. METOPROLOL (METOPROLOL) (TABLETS) (METOPROLOL) [Concomitant]
  3. MEMANTINE [Suspect]
     Dosage: 20 MG (5 MG, 4  IN 1 D),ORAL
     Route: 048
     Dates: start: 20091008, end: 20100320
  4. SIMVASTATIN (SIMVASTATIN) (TABLETS) (SIMVASTATIN) [Concomitant]
  5. ACETYLSALICYLIC ACID (ACETYLSALICYLIC ACID) (TABLETS) (ACETYLSALICYLIC [Concomitant]

REACTIONS (1)
  - PSYCHOMOTOR HYPERACTIVITY [None]
